FAERS Safety Report 12503152 (Version 1)
Quarter: 2016Q2

REPORT INFORMATION
  Report Type: Spontaneous
  Country: US (occurrence: None)
  Receive Date: 20160627
  Receipt Date: 20160627
  Transmission Date: 20160815
  Serious: Yes (Disabling)
  Sender: FDA-Public Use
  Company Number: None

PATIENT
  Age: 51 Year
  Sex: Female
  Weight: 65.77 kg

DRUGS (2)
  1. PEROXIE CARE TARTAR CONTROL HEALTHY GUMS BAKING SODA AND PEROXIDE [Suspect]
     Active Substance: SODIUM FLUORIDE
     Indication: DENTAL DISORDER PROPHYLAXIS
     Route: 061
     Dates: start: 20160613, end: 20160625
  2. LORATIDINE [Concomitant]
     Active Substance: LORATADINE

REACTIONS (11)
  - Oral pain [None]
  - Dry mouth [None]
  - Dysphagia [None]
  - Lip pain [None]
  - Gingival erythema [None]
  - Swollen tongue [None]
  - Oral mucosal erythema [None]
  - Aphthous ulcer [None]
  - Oropharyngeal pain [None]
  - Cheilitis [None]
  - Speech disorder [None]

NARRATIVE: CASE EVENT DATE: 20160615
